FAERS Safety Report 11430212 (Version 1)
Quarter: 2015Q3

REPORT INFORMATION
  Report Type: Spontaneous
  Country: US (occurrence: US)
  Receive Date: 20150828
  Receipt Date: 20150828
  Transmission Date: 20151125
  Serious: Yes (Other)
  Sender: FDA-Public Use
  Company Number: US-ROCHE-1222084

PATIENT
  Sex: Female

DRUGS (2)
  1. PEGASYS [Suspect]
     Active Substance: PEGINTERFERON ALFA-2A
     Indication: HEPATITIS C
     Route: 058
     Dates: start: 20130502
  2. RIBAVIRIN. [Suspect]
     Active Substance: RIBAVIRIN
     Indication: HEPATITIS C
     Route: 048
     Dates: start: 20130502

REACTIONS (8)
  - Injection site bruising [Unknown]
  - Back pain [Unknown]
  - Headache [Unknown]
  - Pneumonia [Recovered/Resolved]
  - Pain [Unknown]
  - Dysuria [Unknown]
  - Musculoskeletal pain [Unknown]
  - Arthralgia [Unknown]
